FAERS Safety Report 7821591-4 (Version None)
Quarter: 2011Q4

REPORT INFORMATION
  Report Type: 
  Country: None (occurrence: None)
  Receive Date: 20111018
  Receipt Date: 20110607
  Transmission Date: 20120403
  Serious: No
  Sender: FDA-Public Use
  Company Number: US-ASTRAZENECA-2011SE35159

PATIENT
  Age: 81 Year
  Sex: Female

DRUGS (1)
  1. SYMBICORT [Suspect]
     Indication: HYPERSENSITIVITY
     Dosage: 80/4.5 MCG TWO TIMES A DAY
     Route: 055
     Dates: start: 20100101

REACTIONS (2)
  - DRUG PRESCRIBING ERROR [None]
  - CANDIDIASIS [None]
